FAERS Safety Report 7278864-6 (Version None)
Quarter: 2011Q1

REPORT INFORMATION
  Report Type: 
  Country: None (occurrence: None)
  Receive Date: 20110207
  Receipt Date: 20110201
  Transmission Date: 20110831
  Serious: Yes (Other)
  Sender: FDA-Public Use
  Company Number: UA-GENZYME-CAMP-1000068

PATIENT
  Sex: Male
  Weight: 66 kg

DRUGS (4)
  1. METHYLPREDNISOLONE [Concomitant]
     Indication: MULTIPLE SCLEROSIS
     Dosage: 1.0 G, QD
     Route: 042
     Dates: start: 20080519, end: 20080519
  2. CAMPATH [Suspect]
     Dosage: 12 MG, QDX3
     Route: 042
     Dates: start: 20090518, end: 20090520
  3. CAMPATH [Suspect]
     Indication: MULTIPLE SCLEROSIS
     Dosage: 6 MG, QD
     Route: 042
     Dates: start: 20080519, end: 20080519
  4. METHYLPREDNISOLONE [Concomitant]
     Dosage: 1.0 G, QDX3
     Route: 042
     Dates: start: 20090518, end: 20090520

REACTIONS (1)
  - ANAPHYLACTIC SHOCK [None]
